FAERS Safety Report 8566344 (Version 2)
Quarter: 2012Q4

REPORT INFORMATION
  Report Type: 
  Country: CA (occurrence: CA)
  Receive Date: 20120517
  Receipt Date: 20121211
  Transmission Date: 20130627
  Serious: Yes (Hospitalization, Other)
  Sender: FDA-Public Use
  Company Number: PHHY2012CA040499

PATIENT
  Sex: Male

DRUGS (1)
  1. ZOMETA [Suspect]
     Indication: PROSTATE CANCER METASTATIC
     Dosage: 4 mg, every 3 onths
     Route: 042
     Dates: start: 20100810, end: 20121003

REACTIONS (5)
  - Urinary bladder haemorrhage [Unknown]
  - Bladder cancer [Unknown]
  - Second primary malignancy [Unknown]
  - Gastric cancer [Unknown]
  - Second primary malignancy [Unknown]
